FAERS Safety Report 22298493 (Version 2)
Quarter: 2023Q2

REPORT INFORMATION
  Report Type: Spontaneous
  Country: HK (occurrence: HK)
  Receive Date: 20230509
  Receipt Date: 20230522
  Transmission Date: 20230722
  Serious: Yes (Hospitalization, Other)
  Sender: FDA-Public Use
  Company Number: HK-PFIZER INC-PV202300080194

PATIENT
  Age: 47 Year
  Sex: Female
  Weight: 60 kg

DRUGS (5)
  1. PAXLOVID [Suspect]
     Active Substance: NIRMATRELVIR\RITONAVIR
     Indication: COVID-19 treatment
     Dosage: UNK (AS INDICATED ON THE INSTRUCTION IN THE BOX)
     Dates: start: 20221210
  2. LYSOZYME [Concomitant]
     Active Substance: LYSOZYME
     Dosage: 90 MG, 4X/DAY
     Dates: start: 20221207
  3. MONTELUKAST SODIUM [Concomitant]
     Active Substance: MONTELUKAST SODIUM
     Dosage: 10 MG
     Dates: start: 20221207
  4. ZITHROMAX [Concomitant]
     Active Substance: AZITHROMYCIN DIHYDRATE
     Dosage: 250 MG
     Dates: start: 20221207
  5. COCILLANA COMPOUND [Concomitant]
     Dosage: 7.5 MG, EVERY 4 HOURS
     Dates: start: 20221207

REACTIONS (4)
  - Tinnitus [Not Recovered/Not Resolved]
  - Emotional distress [Recovered/Resolved]
  - Initial insomnia [Not Recovered/Not Resolved]
  - Depression [Recovered/Resolved]

NARRATIVE: CASE EVENT DATE: 20221210
